FAERS Safety Report 5209898-0 (Version None)
Quarter: 2006Q4

REPORT INFORMATION
  Report Type: 
  Country: None (occurrence: None)
  Receive Date: 20061130
  Receipt Date: 20051214
  Transmission Date: 20070319
  Serious: Yes (Other)
  Sender: FDA-Public Use
  Company Number: 2005168019

PATIENT
  Age: 43 Year
  Sex: Female
  Weight: 60.3284 kg

DRUGS (20)
  1. ZYVOX [Suspect]
     Indication: ENTEROCOCCAL BACTERAEMIA
     Dosage: 1200 MG (600 MG, 2 IN 1 D)
     Dates: start: 20051212
  2. GENTAMICIN SULFATE [Concomitant]
  3. ROCEPHIN [Concomitant]
  4. VANCOMYCIN [Concomitant]
  5. CASPOFUNGIN (CASPOFUNGIN) [Concomitant]
  6. XOPENEX [Concomitant]
  7. TYLENOL [Concomitant]
  8. DULCOLAX [Concomitant]
  9. VALIUM [Concomitant]
  10. DOCUSATE (DOCUSATE) [Concomitant]
  11. HEPARIN [Concomitant]
  12. INSULIN, REGULAR (INSULIN) [Concomitant]
  13. LANSOPRAZOLE [Concomitant]
  14. FLUCONAZOLE [Concomitant]
  15. SYNTHROID [Concomitant]
  16. LORAZEPAM [Concomitant]
  17. PROMETHAZINE [Concomitant]
  18. MICONAZOLE [Concomitant]
  19. OXYCODONE HCL [Concomitant]
  20. ALUMINUM HYDROXIDE AND MAGNESIUM TRISILICATE [Concomitant]

REACTIONS (2)
  - CONDITION AGGRAVATED [None]
  - NEUTROPENIA [None]
